FAERS Safety Report 8245156-8 (Version None)
Quarter: 2012Q1

REPORT INFORMATION
  Report Type: 
  Country: None (occurrence: None)
  Receive Date: 20120329
  Receipt Date: 20110326
  Transmission Date: 20120608
  Serious: Yes (Life-Threatening, Hospitalization)
  Sender: FDA-Public Use
  Company Number: IT-CELGENEUS-083-21880-12011114

PATIENT

DRUGS (6)
  1. REVLIMID [Suspect]
     Indication: MYELOMA RECURRENCE
     Dosage: 25 MILLIGRAM
     Route: 048
     Dates: start: 20110219, end: 20110311
  2. LYRICA [Concomitant]
     Dosage: 150 MILLIGRAM
     Route: 048
  3. TRAMADOL HCL [Concomitant]
     Dosage: 100 MILLIGRAM
     Route: 048
  4. DEXAMETHASONE SODIUM PHOSPHATE [Concomitant]
     Route: 048
     Dates: start: 20110219, end: 20110304
  5. ASPIRIN [Concomitant]
     Dosage: 100 MILLIGRAM
     Route: 048
     Dates: start: 20110219, end: 20110325
  6. EPREX [Concomitant]
     Route: 058
     Dates: start: 20110219, end: 20110325

REACTIONS (1)
  - SEPTIC SHOCK [None]
